FAERS Safety Report 16464630 (Version 2)
Quarter: 2019Q3

REPORT INFORMATION
  Report Type: Spontaneous
  Country: JP (occurrence: JP)
  Receive Date: 20190621
  Receipt Date: 20190703
  Transmission Date: 20191004
  Serious: Yes (Hospitalization)
  Sender: FDA-Public Use
  Company Number: PHHY2019JP142611

PATIENT
  Age: 80 Year
  Sex: Female

DRUGS (3)
  1. LEVODOPA BENSERAZIDE HYDROCHLO [Concomitant]
     Active Substance: BENSERAZIDE HYDROCHLORIDE\LEVODOPA
     Indication: PRODUCT USED FOR UNKNOWN INDICATION
     Dosage: 200 MG, UNK
     Route: 065
  2. EXELON PATCH [Suspect]
     Active Substance: RIVASTIGMINE
     Indication: DEMENTIA ALZHEIMER^S TYPE
     Dosage: 4.5 MG, UNK
     Route: 062
  3. LEVODOPA BENSERAZIDE HYDROCHLO [Concomitant]
     Active Substance: BENSERAZIDE HYDROCHLORIDE\LEVODOPA
     Dosage: 300 MG, UNK
     Route: 065

REACTIONS (3)
  - Asphyxia [Unknown]
  - Aspiration [Unknown]
  - Fall [Unknown]
